FAERS Safety Report 9646733 (Version 2)
Quarter: 2013Q4

REPORT INFORMATION
  Report Type: Spontaneous
  Country: US (occurrence: US)
  Receive Date: 20131027
  Receipt Date: 20131027
  Transmission Date: 20140711
  Serious: Yes (Other)
  Sender: FDA-Public Use
  Company Number: US-NAPPMUNDI-USA-2013-0101134

PATIENT
  Sex: Female

DRUGS (4)
  1. OXYCONTIN TABLETS [Suspect]
     Indication: DRUG ABUSE
     Route: 048
  2. COCAINE [Suspect]
     Indication: DRUG ABUSE
  3. HEROIN [Suspect]
     Indication: DRUG ABUSE
  4. SPEED [Suspect]
     Indication: DRUG ABUSE

REACTIONS (1)
  - Substance abuse [Unknown]
